FAERS Safety Report 17396513 (Version 3)
Quarter: 2020Q3

REPORT INFORMATION
  Report Type: Spontaneous
  Country: US (occurrence: US)
  Receive Date: 20200210
  Receipt Date: 20200910
  Transmission Date: 20201102
  Serious: No
  Sender: FDA-Public Use
  Company Number: US-PFIZER INC-2020054797

PATIENT
  Age: 59 Year
  Sex: Female

DRUGS (1)
  1. XELJANZ XR [Suspect]
     Active Substance: TOFACITINIB CITRATE
     Indication: RHEUMATOID ARTHRITIS
     Dosage: 11 MG, 1X/DAY
     Route: 048
     Dates: start: 20190531

REACTIONS (7)
  - Condition aggravated [Unknown]
  - Vomiting [Unknown]
  - Gastroenteritis viral [Unknown]
  - Sinusitis [Unknown]
  - Product dose omission in error [Unknown]
  - Ear infection [Unknown]
  - Nausea [Unknown]
